FAERS Safety Report 13814601 (Version 1)
Quarter: 2017Q3

REPORT INFORMATION
  Report Type: Spontaneous
  Country: US (occurrence: US)
  Receive Date: 20170731
  Receipt Date: 20170731
  Transmission Date: 20171127
  Serious: No
  Sender: FDA-Public Use
  Company Number: US-SUN PHARMACEUTICAL INDUSTRIES LTD-2017US-132991

PATIENT
  Sex: Male

DRUGS (1)
  1. TESTOSTERONE. [Suspect]
     Active Substance: TESTOSTERONE
     Indication: EMPTY SELLA SYNDROME
     Dosage: 400 MG/ML, EVERY TWO WEEKS
     Route: 065

REACTIONS (11)
  - Feeling abnormal [Unknown]
  - Breast tenderness [Unknown]
  - Tachyphrenia [Unknown]
  - Blood pressure abnormal [Unknown]
  - Anxiety [Unknown]
  - Blood testosterone increased [Unknown]
  - Agitation [Unknown]
  - Condition aggravated [Unknown]
  - Palpitations [Unknown]
  - Breast enlargement [Unknown]
  - Thinking abnormal [Unknown]

NARRATIVE: CASE EVENT DATE: 201701
